FAERS Safety Report 4405328-7 (Version None)
Quarter: 2004Q3

REPORT INFORMATION
  Report Type: 
  Country: None (occurrence: None)
  Receive Date: 20040720
  Receipt Date: 20040423
  Transmission Date: 20050211
  Serious: Yes (Hospitalization)
  Sender: FDA-Public Use
  Company Number: 2000-BL-00205 (2)

PATIENT
  Age: 41 Year
  Sex: 0

DRUGS (4)
  1. VIRAMUNE [Suspect]
     Indication: HIV INFECTION
     Dosage: 200 MG (200 MG, ONCE DAILY) PO
     Route: 048
     Dates: start: 20000704, end: 20000718
  2. EFAVIRENZ (NEVIRAPINE REFERENCE) (KA) [Suspect]
     Indication: HIV INFECTION
     Dosage: 600 MG (200 MG, 3 IN 24 HR) PO
     Route: 048
     Dates: start: 20000704, end: 20000802
  3. STAVUDINE (STAVUDINE) (KA) [Concomitant]
  4. LAMIVUDINE (LAMIVUDINE) (TA) [Concomitant]

REACTIONS (4)
  - EYE PAIN [None]
  - PRURITUS [None]
  - RASH GENERALISED [None]
  - RASH MACULO-PAPULAR [None]
